FAERS Safety Report 8491683-8 (Version None)
Quarter: 2012Q3

REPORT INFORMATION
  Report Type: 
  Country: None (occurrence: None)
  Receive Date: 20120706
  Receipt Date: 20120625
  Transmission Date: 20120928
  Serious: Yes (Death)
  Sender: FDA-Public Use
  Company Number: US-BRISTOL-MYERS SQUIBB COMPANY-16654824

PATIENT

DRUGS (1)
  1. YERVOY [Suspect]
     Dosage: STRENGTH:YERVOY 50MG/10ML, QTY 3 YERVOY 200MG/40ML, QTY 1, 00003-2328-22, LOT#918121, EXP:APR14

REACTIONS (1)
  - DEATH [None]
